FAERS Safety Report 7974463 (Version 4)
Quarter: 2012Q4

REPORT INFORMATION
  Report Type: 
  Country: US (occurrence: US)
  Receive Date: 20110603
  Receipt Date: 20121101
  Transmission Date: 20130627
  Serious: Yes (Hospitalization, Other)
  Sender: FDA-Public Use
  Company Number: US-ASTRAZENECA-2011SE32811

PATIENT
  Age: 62 Year
  Sex: Female
  Weight: 101.6 kg

DRUGS (1)
  1. NEXIUM [Suspect]
     Indication: GASTROOESOPHAGEAL REFLUX DISEASE
     Route: 048

REACTIONS (5)
  - Arterial occlusive disease [Unknown]
  - Chest discomfort [Unknown]
  - Hypertension [Unknown]
  - Barrett^s oesophagus [Unknown]
  - Blood cholesterol increased [Unknown]
